FAERS Safety Report 24462522 (Version 1)
Quarter: 2024Q4

REPORT INFORMATION
  Report Type: Spontaneous
  Country: AU (occurrence: AU)
  Receive Date: 20241018
  Receipt Date: 20241018
  Transmission Date: 20250115
  Serious: Yes (Other)
  Sender: RANBAXY
  Company Number: AU-SUN PHARMACEUTICAL INDUSTRIES LTD-2024R1-473672

PATIENT
  Age: 9 Year
  Sex: Female

DRUGS (2)
  1. CALCITRIOL [Suspect]
     Active Substance: CALCITRIOL
     Indication: Hypoparathyroidism
     Dosage: UNK
     Route: 048
  2. CALCIUM [Suspect]
     Active Substance: CALCIUM
     Indication: Hypoparathyroidism
     Dosage: UNK
     Route: 048

REACTIONS (2)
  - Drug ineffective [Not Recovered/Not Resolved]
  - Nephrocalcinosis [Unknown]
